FAERS Safety Report 7240669-X (Version None)
Quarter: 2011Q1

REPORT INFORMATION
  Report Type: 
  Country: None (occurrence: None)
  Receive Date: 20110124
  Receipt Date: 20100416
  Transmission Date: 20110831
  Serious: No
  Sender: FDA-Public Use
  Company Number: US-KINGPHARMUSA00001-K201000483

PATIENT
  Age: 55 Year
  Sex: Male
  Weight: 86.168 kg

DRUGS (1)
  1. EPIPEN [Suspect]
     Dosage: 0.3 MG, SINGLE
     Dates: start: 20100409, end: 20100409

REACTIONS (3)
  - INJECTION SITE SWELLING [None]
  - ACCIDENTAL EXPOSURE [None]
  - INJECTION SITE ANAESTHESIA [None]
